FAERS Safety Report 8533349-1 (Version None)
Quarter: 2012Q3

REPORT INFORMATION
  Report Type: 
  Country: None (occurrence: None)
  Receive Date: 20120717
  Receipt Date: 20120717
  Transmission Date: 20120928
  Serious: Yes (Hospitalization)
  Sender: FDA-Public Use
  Company Number: None

PATIENT
  Age: 61 Year
  Sex: Male
  Weight: 88.3 kg

DRUGS (1)
  1. MINOCYCLINE HCL [Suspect]
     Indication: MYCOBACTERIUM MARINUM INFECTION
     Dosage: 100 MG BID PO
     Route: 048
     Dates: start: 20120501, end: 20120522

REACTIONS (12)
  - PALPITATIONS [None]
  - NIGHT SWEATS [None]
  - SHOCK [None]
  - ABDOMINAL PAIN UPPER [None]
  - MUSCULOSKELETAL CHEST PAIN [None]
  - HEPATIC FAILURE [None]
  - ATRIAL FLUTTER [None]
  - INTERNATIONAL NORMALISED RATIO ABNORMAL [None]
  - HEADACHE [None]
  - PYREXIA [None]
  - ATRIAL FIBRILLATION [None]
  - RENAL FAILURE [None]
